FAERS Safety Report 18189754 (Version 1)
Quarter: 2020Q3

REPORT INFORMATION
  Report Type: Spontaneous
  Country: US (occurrence: US)
  Receive Date: 20200824
  Receipt Date: 20200824
  Transmission Date: 20201103
  Serious: No
  Sender: FDA-Public Use
  Company Number: US-AKRON, INC.-2088977

PATIENT
  Sex: Male

DRUGS (1)
  1. DORZOLAMIDEHCL?TIMOLOL MAL SOLUTION [Suspect]
     Active Substance: DORZOLAMIDE HYDROCHLORIDE\TIMOLOL MALEATE
     Route: 047

REACTIONS (2)
  - Dry eye [Unknown]
  - Vision blurred [Unknown]
